FAERS Safety Report 11697621 (Version 2)
Quarter: 2015Q4

REPORT INFORMATION
  Report Type: Spontaneous
  Country: GB (occurrence: GB)
  Receive Date: 20151104
  Receipt Date: 20151130
  Transmission Date: 20160304
  Serious: Yes (Other)
  Sender: FDA-Public Use
  Company Number: GB-JNJFOC-20151100116

PATIENT
  Age: 64 Year
  Sex: Male

DRUGS (3)
  1. ASACOL [Concomitant]
     Active Substance: MESALAMINE
     Indication: COLITIS ULCERATIVE
     Route: 065
  2. SIMPONI [Suspect]
     Active Substance: GOLIMUMAB
     Indication: COLITIS ULCERATIVE
     Route: 058
  3. PROPRANOLOL [Concomitant]
     Active Substance: PROPRANOLOL\PROPRANOLOL HYDROCHLORIDE
     Indication: HYPERTENSION
     Route: 065

REACTIONS (2)
  - Night sweats [Recovered/Resolved]
  - Colitis ulcerative [Recovered/Resolved]

NARRATIVE: CASE EVENT DATE: 201510
